FAERS Safety Report 7988142-5 (Version None)
Quarter: 2011Q4

REPORT INFORMATION
  Report Type: 
  Country: None (occurrence: None)
  Receive Date: 20111216
  Receipt Date: 20110617
  Transmission Date: 20120403
  Serious: No
  Sender: FDA-Public Use
  Company Number: US-BRISTOL-MYERS SQUIBB COMPANY-15843303

PATIENT
  Age: 52 Year
  Sex: Female

DRUGS (1)
  1. ABILIFY [Suspect]
     Dosage: STOPPED INITIALLY ON 23-MAY-2011
     Dates: end: 20110527

REACTIONS (1)
  - ADVERSE EVENT [None]
